FAERS Safety Report 20471179 (Version 1)
Quarter: 2022Q1

REPORT INFORMATION
  Report Type: Report from Study
  Country: CR (occurrence: CR)
  Receive Date: 20220214
  Receipt Date: 20220214
  Transmission Date: 20220423
  Serious: Yes (Life-Threatening, Other)
  Sender: FDA-Public Use
  Company Number: CR-NOVARTISPH-NVSC2022CR033380

PATIENT
  Age: 72 Year
  Sex: Female

DRUGS (1)
  1. EXFORGE HCT [Suspect]
     Active Substance: AMLODIPINE BESYLATE\HYDROCHLOROTHIAZIDE\VALSARTAN
     Indication: Product used for unknown indication
     Dosage: 5/160/12.5 MG (APPROXIMATELY 7 YEARS AGO)
     Route: 065

REACTIONS (9)
  - Feeling abnormal [Unknown]
  - Infarction [Unknown]
  - Blindness [Unknown]
  - Illness [Unknown]
  - Limb injury [Unknown]
  - Agitation [Unknown]
  - Confusional state [Unknown]
  - Gait inability [Unknown]
  - Product dose omission issue [Unknown]
